FAERS Safety Report 9335690 (Version 1)
Quarter: 2013Q2

REPORT INFORMATION
  Report Type: Spontaneous
  Country: US (occurrence: US)
  Receive Date: 20130607
  Receipt Date: 20130607
  Transmission Date: 20140414
  Serious: Yes (Other)
  Sender: FDA-Public Use
  Company Number: US-PAR PHARMACEUTICAL, INC-2013SCPR005945

PATIENT
  Sex: 0

DRUGS (1)
  1. METOCLOPRAMIDE [Suspect]
     Indication: LACTATION DISORDER
     Dosage: 1 DF, TID
     Route: 048
     Dates: start: 20130219, end: 20130518

REACTIONS (7)
  - Panic attack [Not Recovered/Not Resolved]
  - Autophobia [Unknown]
  - Depression [Recovering/Resolving]
  - Decreased appetite [Recovered/Resolved]
  - Off label use [Unknown]
  - Anxiety [Unknown]
  - Insomnia [Recovered/Resolved]
